FAERS Safety Report 23715886 (Version 1)
Quarter: 2024Q2

REPORT INFORMATION
  Report Type: Spontaneous
  Country: US (occurrence: US)
  Receive Date: 20240408
  Receipt Date: 20240408
  Transmission Date: 20240716
  Serious: No
  Sender: FDA-Public Use
  Company Number: US-TWI PHARMACEUTICAL, INC-2023SCTW000037

PATIENT

DRUGS (7)
  1. NIFEDIPINE [Suspect]
     Active Substance: NIFEDIPINE
     Indication: Hypertension
     Dosage: 60 MG, OD
     Route: 048
     Dates: start: 202110, end: 202201
  2. TADALAFIL [Concomitant]
     Active Substance: TADALAFIL
     Indication: Renal disorder
     Dosage: 1 DOSAGE FORM, OD
     Route: 048
     Dates: end: 20230620
  3. TADALAFIL [Concomitant]
     Active Substance: TADALAFIL
     Indication: Capillary disorder
  4. NEBIVOLOL [Concomitant]
     Active Substance: NEBIVOLOL
     Indication: Blood pressure abnormal
     Dosage: 1 DOSAGE FORM, OD
     Route: 048
     Dates: end: 20230620
  5. FOLIC ACID [Concomitant]
     Active Substance: FOLIC ACID
     Indication: Supplementation therapy
     Dosage: 1 DOSAGE FORM, OD
     Route: 048
  6. ACETYLCYSTEINE [Concomitant]
     Active Substance: ACETYLCYSTEINE
     Indication: Supplementation therapy
     Dosage: UNK, BID
     Route: 048
  7. ACETYLCYSTEINE [Concomitant]
     Active Substance: ACETYLCYSTEINE
     Indication: Antioxidant therapy

REACTIONS (1)
  - Constipation [Not Recovered/Not Resolved]

NARRATIVE: CASE EVENT DATE: 20211001
